FAERS Safety Report 6379625-2 (Version None)
Quarter: 2009Q3

REPORT INFORMATION
  Report Type: 
  Country: None (occurrence: None)
  Receive Date: 20090928
  Receipt Date: 20090917
  Transmission Date: 20100115
  Serious: Yes (Hospitalization)
  Sender: FDA-Public Use
  Company Number: JP-JNJFOC-20090809359

PATIENT
  Sex: Female
  Weight: 52 kg

DRUGS (9)
  1. REMICADE [Suspect]
     Route: 042
  2. REMICADE [Suspect]
     Dosage: WEEK 0 OF STUDY DRUG
     Route: 042
  3. REMICADE [Suspect]
     Dosage: 2ND INFUSION (COMMERCIAL DRUG)
     Route: 042
  4. REMICADE [Suspect]
     Indication: CROHN'S DISEASE
     Dosage: 1ST INFUSION (COMMERCIAL DRUG)
     Route: 042
  5. PENTASA [Concomitant]
     Indication: CROHN'S DISEASE
     Dosage: STARTED PRIOR TO 17-JUL-2009
     Route: 048
  6. APLACE [Concomitant]
     Indication: GASTROINTESTINAL DISORDER THERAPY
     Dosage: STARTED PRIOR TO 17-JUL-2009
     Route: 048
  7. ELENTAL [Concomitant]
     Indication: CROHN'S DISEASE
     Dosage: STARTED PRIOR TO 17-JUL-2009
     Route: 048
  8. GASTER D [Concomitant]
     Indication: GASTROINTESTINAL DISORDER THERAPY
     Dosage: STARTED PRIOR TO 17-JUL-2009
     Route: 048
  9. FERROMIA [Concomitant]
     Indication: ANAEMIA
     Dosage: STARTED PRIOR TO 17-JUL-2009
     Route: 048

REACTIONS (2)
  - CROHN'S DISEASE [None]
  - INTESTINAL RESECTION [None]
